FAERS Safety Report 7247299-4 (Version None)
Quarter: 2011Q1

REPORT INFORMATION
  Report Type: 
  Country: None (occurrence: None)
  Receive Date: 20110127
  Receipt Date: 20110119
  Transmission Date: 20110831
  Serious: Yes (Other)
  Sender: FDA-Public Use
  Company Number: A0909385A

PATIENT
  Age: 44 Year
  Sex: Male

DRUGS (2)
  1. FLONASE [Suspect]
     Route: 065
     Dates: start: 20091119
  2. VENTOLIN [Suspect]
     Route: 065
     Dates: start: 20090423

REACTIONS (1)
  - PNEUMONIA [None]
